FAERS Safety Report 5929045-7 (Version None)
Quarter: 2008Q4

REPORT INFORMATION
  Report Type: 
  Country: None (occurrence: None)
  Receive Date: 20081024
  Receipt Date: 20081017
  Transmission Date: 20090506
  Serious: Yes (Disabling)
  Sender: FDA-Public Use
  Company Number: FR-JNJFOC-20081000384

PATIENT
  Sex: Male
  Weight: 60 kg

DRUGS (8)
  1. RISPERDAL [Suspect]
     Indication: SCHIZOPHRENIA, PARANOID TYPE
     Route: 048
  2. ZYPREXA [Concomitant]
     Route: 048
  3. ZYPREXA [Concomitant]
     Route: 048
  4. ZYPREXA [Concomitant]
     Indication: SCHIZOPHRENIA
     Route: 048
  5. ATHYMIL [Concomitant]
     Indication: SCHIZOPHRENIA
     Route: 048
  6. TRANXENE [Concomitant]
     Indication: SCHIZOPHRENIA
     Route: 048
  7. TERCIAN [Concomitant]
     Indication: SCHIZOPHRENIA
     Route: 048
  8. SULFARLEM [Concomitant]
     Indication: SCHIZOPHRENIA
     Route: 048

REACTIONS (4)
  - ANXIETY [None]
  - HEADACHE [None]
  - INSOMNIA [None]
  - NAUSEA [None]
